FAERS Safety Report 8344525-5 (Version None)
Quarter: 2012Q1

REPORT INFORMATION
  Report Type: 
  Country: None (occurrence: None)
  Receive Date: 20120315
  Receipt Date: 20110524
  Transmission Date: 20120608
  Serious: No
  Sender: FDA-Public Use
  Company Number: PHHY2011US39730

PATIENT
  Age: 41 Year
  Sex: Female

DRUGS (6)
  1. TEGRETOL [Concomitant]
  2. PAMELOR [Concomitant]
  3. GILENYA [Suspect]
     Indication: MULTIPLE SCLEROSIS
     Dosage: 0.5 MG, DAILY, ORAL
     Route: 048
     Dates: start: 20110328
  4. MACRODANTIN (NITROFLURANTOIN) [Concomitant]
  5. KLONOPIN [Concomitant]
  6. ZOLOFT [Concomitant]

REACTIONS (3)
  - PRURITUS [None]
  - RASH [None]
  - PILOERECTION [None]
